FAERS Safety Report 5977788-1 (Version None)
Quarter: 2008Q4

REPORT INFORMATION
  Report Type: 
  Country: None (occurrence: None)
  Receive Date: 20081202
  Receipt Date: 20081202
  Transmission Date: 20090506
  Serious: Yes (Other)
  Sender: FDA-Public Use
  Company Number: None

PATIENT
  Age: 53 Year
  Sex: Female
  Weight: 99.7913 kg

DRUGS (2)
  1. MIRAPEX [Suspect]
     Indication: RESTLESS LEGS SYNDROME
     Dosage: 3 TABLETS -1.5 MG- AT BEDTIME PO
     Route: 048
     Dates: start: 20040101, end: 20080701
  2. MIRAPEX [Suspect]
     Indication: RESTLESS LEGS SYNDROME
     Dosage: 1 TABLET -1.5 MG- AT BEDTIME PO
     Route: 048
     Dates: start: 20080812, end: 20081126

REACTIONS (3)
  - ECONOMIC PROBLEM [None]
  - LEGAL PROBLEM [None]
  - PATHOLOGICAL GAMBLING [None]
